FAERS Safety Report 9491521 (Version 1)
Quarter: 2013Q1

REPORT INFORMATION
  Report Type: Not Available
  Country: US (occurrence: US)
  Receive Date: 20121219
  Receipt Date: 20121219
  Transmission Date: 20140127
  Serious: No
  Sender: FDA-Public Use
  Company Number: US-LUNDBECK-DKLU1079472

PATIENT
  Sex: Male

DRUGS (2)
  1. ONFI [Suspect]
     Indication: CONVULSION
  2. KLONOPIN [Concomitant]
     Indication: CONVULSION

REACTIONS (6)
  - Increased appetite [Unknown]
  - Weight increased [Unknown]
  - Drooling [Unknown]
  - Fatigue [Unknown]
  - Balance disorder [Unknown]
  - Hypersomnia [Recovered/Resolved]
